FAERS Safety Report 5801580-1 (Version None)
Quarter: 2008Q3

REPORT INFORMATION
  Report Type: 
  Country: None (occurrence: None)
  Receive Date: 20080707
  Receipt Date: 20080624
  Transmission Date: 20090109
  Serious: Yes (Other)
  Sender: FDA-Public Use
  Company Number: GB-NOVOPROD-276761

PATIENT
  Age: 61 Year
  Sex: Male

DRUGS (1)
  1. ACTRAPID [Suspect]
     Indication: DIABETES MELLITUS

REACTIONS (6)
  - BURNING SENSATION [None]
  - HEART RATE IRREGULAR [None]
  - IRRITABILITY [None]
  - NEUROPATHY PERIPHERAL [None]
  - PAIN IN EXTREMITY [None]
  - SLEEP DISORDER [None]
